FAERS Safety Report 9381475 (Version 2)
Quarter: 2013Q3

REPORT INFORMATION
  Report Type: Report from Study
  Country: AU (occurrence: AU)
  Receive Date: 20130703
  Receipt Date: 20130820
  Transmission Date: 20140515
  Serious: Yes (Other)
  Sender: FDA-Public Use
  Company Number: PHHY2013AU069091

PATIENT
  Sex: Male

DRUGS (2)
  1. CLOZARIL [Suspect]
     Dosage: 500 MG
     Dates: start: 20010822
  2. CLOZARIL [Suspect]
     Dosage: 400 MG, UNK
     Dates: start: 20130709

REACTIONS (1)
  - Prostate cancer [Unknown]
